FAERS Safety Report 8967671 (Version 1)
Quarter: 2012Q4

REPORT INFORMATION
  Report Type: Spontaneous
  Country: US (occurrence: None)
  Receive Date: 20121206
  Receipt Date: 20121206
  Transmission Date: 20130627
  Serious: Yes (Hospitalization)
  Sender: FDA-Public Use
  Company Number: 100423-000174

PATIENT
  Age: 44 Year
  Sex: Female

DRUGS (2)
  1. MEANINGFUL BEAUTY ANTIOXIDANT DAY CREME SPF 20 [Suspect]
     Dosage: Twice daily dermal
     Route: 023
     Dates: start: 20100401, end: 20100403
  2. CALCIUM SUPPLEMENTS [Concomitant]

REACTIONS (5)
  - Swelling face [None]
  - Erythema [None]
  - Pruritus [None]
  - Eye swelling [None]
  - Inflammation [None]
